FAERS Safety Report 5867911-1 (Version None)
Quarter: 2008Q3

REPORT INFORMATION
  Report Type: 
  Country: None (occurrence: None)
  Receive Date: 20080902
  Receipt Date: 20080616
  Transmission Date: 20090109
  Serious: No
  Sender: FDA-Public Use
  Company Number: US-ABBOTT-08P-163-0458672-00

PATIENT
  Sex: Female
  Weight: 74.456 kg

DRUGS (5)
  1. DEPAKOTE ER [Suspect]
     Indication: DEPRESSION
     Route: 048
     Dates: start: 20080301, end: 20080401
  2. DEPAKOTE ER [Suspect]
     Indication: MAJOR DEPRESSION
     Route: 048
     Dates: start: 20080401, end: 20080401
  3. DEPAKOTE ER [Suspect]
     Indication: POSTPARTUM DEPRESSION
     Route: 048
     Dates: start: 20080401, end: 20080501
  4. DEPAKOTE ER [Suspect]
     Indication: ANXIETY
     Route: 048
     Dates: start: 20080501
  5. ESCITALOPRAM OXALATE [Concomitant]
     Indication: DEPRESSION
     Route: 048
     Dates: start: 20060101

REACTIONS (3)
  - FATIGUE [None]
  - INCREASED APPETITE [None]
  - WEIGHT INCREASED [None]
